APPROVED DRUG PRODUCT: CLOMIPRAMINE HYDROCHLORIDE
Active Ingredient: CLOMIPRAMINE HYDROCHLORIDE
Strength: 25MG
Dosage Form/Route: CAPSULE;ORAL
Application: A212285 | Product #001 | TE Code: AB
Applicant: UNIQUE PHARMACEUTICAL LABORATORIES A DIV OF JB CHEMICALS AND PHARMACEUTICALS LTD
Approved: Aug 7, 2020 | RLD: No | RS: No | Type: RX